FAERS Safety Report 23921828 (Version 1)
Quarter: 2024Q2

REPORT INFORMATION
  Report Type: Spontaneous
  Country: JP (occurrence: JP)
  Receive Date: 20240530
  Receipt Date: 20240530
  Transmission Date: 20240716
  Serious: Yes (Hospitalization)
  Sender: FDA-Public Use
  Company Number: JP-GSKNCCC-Case-01988583_AE-83853

PATIENT

DRUGS (2)
  1. BENLYSTA [Suspect]
     Active Substance: BELIMUMAB
     Dosage: UNK, WE
  2. BENLYSTA [Suspect]
     Active Substance: BELIMUMAB
     Dosage: UNK, WE
     Dates: start: 20240524, end: 20240524

REACTIONS (1)
  - Fracture [Unknown]
